FAERS Safety Report 24978056 (Version 1)
Quarter: 2025Q1

REPORT INFORMATION
  Report Type: Spontaneous
  Country: US (occurrence: US)
  Receive Date: 20250217
  Receipt Date: 20250217
  Transmission Date: 20250409
  Serious: No
  Sender: PERRIGO
  Company Number: US-PERRIGO-24US010430

PATIENT
  Sex: Male

DRUGS (1)
  1. NICOTINE POLACRILEX [Suspect]
     Active Substance: NICOTINE
     Indication: Smoking cessation therapy
     Route: 002

REACTIONS (4)
  - Glycosylated haemoglobin increased [Unknown]
  - Increased upper airway secretion [Unknown]
  - Dizziness [Unknown]
  - Overdose [Unknown]
